FAERS Safety Report 7765449-8 (Version None)
Quarter: 2011Q3

REPORT INFORMATION
  Report Type: 
  Country: None (occurrence: None)
  Receive Date: 20110916
  Receipt Date: 20110907
  Transmission Date: 20111222
  Serious: No
  Sender: FDA-Public Use
  Company Number: CCC100997

PATIENT
  Sex: Female

DRUGS (1)
  1. EPINASTINE HYDROCHLORIDE [Suspect]
     Indication: MULTIPLE ALLERGIES
     Dosage: 1 DROP/EYE ONCE/DAY
     Dates: start: 20110824, end: 20110827

REACTIONS (2)
  - EYE DISORDER [None]
  - OCULAR HYPERAEMIA [None]
